FAERS Safety Report 24047714 (Version 4)
Quarter: 2024Q3

REPORT INFORMATION
  Report Type: Report from Study
  Country: CA (occurrence: CA)
  Receive Date: 20240703
  Receipt Date: 20240820
  Transmission Date: 20241017
  Serious: Yes (Hospitalization, Other)
  Sender: NOVARTIS
  Company Number: CA-002147023-NVSC2024CA133062

PATIENT
  Age: 60 Year
  Sex: Male

DRUGS (2)
  1. MAYZENT [Suspect]
     Active Substance: SIPONIMOD
     Indication: Secondary progressive multiple sclerosis
     Dosage: 0.25 MG, QD STARTER PACK
     Route: 048
     Dates: start: 20240621
  2. MAYZENT [Suspect]
     Active Substance: SIPONIMOD
     Dosage: 2 MG, QD
     Route: 048
     Dates: end: 20240625

REACTIONS (14)
  - Urinary tract infection [Recovering/Resolving]
  - Urinary incontinence [Unknown]
  - Chromaturia [Unknown]
  - Micturition urgency [Unknown]
  - Back pain [Recovered/Resolved]
  - Nephrolithiasis [Unknown]
  - Diarrhoea [Unknown]
  - Nausea [Unknown]
  - Gait inability [Recovered/Resolved]
  - Cold sweat [Unknown]
  - Hyperhidrosis [Unknown]
  - COVID-19 [Unknown]
  - Headache [Unknown]
  - Restless legs syndrome [Unknown]

NARRATIVE: CASE EVENT DATE: 20240621
